FAERS Safety Report 10754680 (Version 1)
Quarter: 2015Q1

REPORT INFORMATION
  Report Type: Spontaneous
  Country: US (occurrence: None)
  Receive Date: 20150130
  Receipt Date: 20150130
  Transmission Date: 20150721
  Serious: Yes (Death, Life-Threatening)
  Sender: FDA-Public Use
  Company Number: None

PATIENT
  Age: 61 Year
  Sex: Male
  Weight: 81.4 kg

DRUGS (11)
  1. ZOSYN [Concomitant]
     Active Substance: PIPERACILLIN SODIUM\TAZOBACTAM SODIUM
  2. VANCOMYCIN [Concomitant]
     Active Substance: VANCOMYCIN
  3. WARFARIN [Suspect]
     Active Substance: WARFARIN
     Indication: MITRAL VALVE REPLACEMENT
     Route: 048
  4. PHENYTOIN. [Concomitant]
     Active Substance: PHENYTOIN
  5. CEFTRIAXONE. [Concomitant]
     Active Substance: CEFTRIAXONE
  6. ENOXAPARIN [Concomitant]
     Active Substance: ENOXAPARIN
  7. DOXYCYCLINE. [Concomitant]
     Active Substance: DOXYCYCLINE
  8. WARFARIN [Suspect]
     Active Substance: WARFARIN
     Indication: ATRIAL FIBRILLATION
     Route: 048
  9. AMPICILLIN [Concomitant]
     Active Substance: AMPICILLIN
  10. CEFEPIME [Concomitant]
     Active Substance: CEFEPIME\CEFEPIME HYDROCHLORIDE
  11. TOBRAMYCIN. [Concomitant]
     Active Substance: TOBRAMYCIN

REACTIONS (8)
  - Subarachnoid haemorrhage [None]
  - Intraventricular haemorrhage [None]
  - Atrial fibrillation [None]
  - Bacterial test positive [None]
  - No therapeutic response [None]
  - International normalised ratio increased [None]
  - Hypotension [None]
  - Haemorrhage intracranial [None]

NARRATIVE: CASE EVENT DATE: 20140807
